FAERS Safety Report 9426947 (Version 6)
Quarter: 2016Q3

REPORT INFORMATION
  Report Type: Spontaneous
  Country: US (occurrence: US)
  Receive Date: 20130730
  Receipt Date: 20160714
  Transmission Date: 20161109
  Serious: Yes (Life-Threatening, Hospitalization, Disabling, Other)
  Sender: FDA-Public Use
  Company Number: US-ASTRAZENECA-2013SE56141

PATIENT
  Age: 72 Year
  Sex: Female
  Weight: 99.3 kg

DRUGS (52)
  1. CRESTOR [Suspect]
     Active Substance: ROSUVASTATIN CALCIUM
     Indication: HYPERLIPIDAEMIA
     Route: 048
     Dates: start: 201211, end: 201302
  2. PRILOSEC [Suspect]
     Active Substance: OMEPRAZOLE MAGNESIUM
     Indication: GASTROOESOPHAGEAL REFLUX DISEASE
     Route: 048
     Dates: start: 201304
  3. PRILOSEC [Suspect]
     Active Substance: OMEPRAZOLE MAGNESIUM
     Indication: GASTROOESOPHAGEAL REFLUX DISEASE
     Dosage: GENERIC
     Route: 048
  4. PRILOSEC [Suspect]
     Active Substance: OMEPRAZOLE MAGNESIUM
     Indication: GASTROOESOPHAGEAL REFLUX DISEASE
     Route: 048
  5. METOPROLOL TARTRATE. [Suspect]
     Active Substance: METOPROLOL TARTRATE
     Indication: MIGRAINE
     Route: 048
  6. ASPIRIN. [Concomitant]
     Active Substance: ASPIRIN
     Indication: ANTICOAGULANT THERAPY
     Route: 048
  7. FUROSEMIDE. [Concomitant]
     Active Substance: FUROSEMIDE
     Indication: FLUID RETENTION
     Dosage: 20.0MG AS REQUIRED
     Route: 048
  8. LEVEMIR [Concomitant]
     Active Substance: INSULIN DETEMIR
     Indication: DIABETES MELLITUS
  9. OMEGA 3 FA [Concomitant]
     Indication: PROPHYLAXIS
     Route: 048
  10. CALCIUM [Concomitant]
     Active Substance: CALCIUM
     Indication: BONE DENSITY ABNORMAL
     Route: 048
  11. ZINC [Concomitant]
     Active Substance: ZINC\ZINC CHLORIDE
     Indication: CONTUSION
     Dates: start: 201302
  12. FUROSEMIDE. [Concomitant]
     Active Substance: FUROSEMIDE
     Indication: OEDEMA
     Dosage: 20.0MG AS REQUIRED
     Route: 048
  13. VIITAMIN D3 [Concomitant]
     Indication: VITAMIN D DEFICIENCY
     Route: 048
  14. CRESTOR [Suspect]
     Active Substance: ROSUVASTATIN CALCIUM
     Indication: BLOOD CHOLESTEROL INCREASED
     Route: 048
     Dates: start: 2012, end: 201304
  15. CRESTOR [Suspect]
     Active Substance: ROSUVASTATIN CALCIUM
     Indication: BLOOD CHOLESTEROL INCREASED
     Route: 048
     Dates: start: 201211, end: 201302
  16. MEDRO [Suspect]
     Active Substance: UNSPECIFIED INGREDIENT
     Indication: ANTICOAGULANT THERAPY
     Route: 065
  17. CALCIUM WITH VIT D [Concomitant]
  18. FUROSEMIDE. [Concomitant]
     Active Substance: FUROSEMIDE
     Indication: FLUID RETENTION
     Dosage: 20.0MG AS REQUIRED
     Route: 048
  19. LOSARTAN POTASSIUM. [Concomitant]
     Active Substance: LOSARTAN POTASSIUM
     Indication: HYPERTENSION
     Route: 048
     Dates: start: 201302
  20. NORCO [Concomitant]
     Active Substance: ACETAMINOPHEN\HYDROCODONE BITARTRATE
     Indication: PAIN
     Dosage: 5/325 DAILY
     Route: 048
  21. GABAPENTIN. [Concomitant]
     Active Substance: GABAPENTIN
     Indication: LIMB DISCOMFORT
     Route: 048
  22. OMEGA 3 FA [Concomitant]
     Indication: PROPHYLAXIS
     Dosage: 500M DAILY
     Route: 048
     Dates: start: 201302
  23. ATIVAN [Concomitant]
     Active Substance: LORAZEPAM
     Route: 048
  24. METOPROLOL TARTRATE. [Suspect]
     Active Substance: METOPROLOL TARTRATE
     Indication: MIGRAINE
     Route: 048
  25. FUROSEMIDE. [Concomitant]
     Active Substance: FUROSEMIDE
     Indication: OEDEMA
     Dosage: 20.0MG AS REQUIRED
     Route: 048
  26. HYDROXYZINE [Concomitant]
     Active Substance: HYDROXYZINE\HYDROXYZINE HYDROCHLORIDE
     Indication: PRURITUS
     Dosage: PRN
  27. HYDROXYZINE [Concomitant]
     Active Substance: HYDROXYZINE\HYDROXYZINE HYDROCHLORIDE
     Indication: PRURITUS
     Dosage: 1 DF 3 TIMES A DAY AS NEEDED
     Route: 048
  28. VICODIN [Concomitant]
     Active Substance: ACETAMINOPHEN\HYDROCODONE BITARTRATE
     Dosage: 5-500, EVERY 8 HOURS AS NEEDED
     Route: 048
  29. STARLIX [Concomitant]
     Active Substance: NATEGLINIDE
  30. ASPIRIN. [Concomitant]
     Active Substance: ASPIRIN
     Indication: DIABETES MELLITUS
     Route: 048
  31. MVI [Concomitant]
     Active Substance: VITAMINS
     Dosage: DAILY
  32. CRESTOR [Suspect]
     Active Substance: ROSUVASTATIN CALCIUM
     Indication: HYPERLIPIDAEMIA
     Route: 048
     Dates: start: 2012, end: 201304
  33. LYRICA [Concomitant]
     Active Substance: PREGABALIN
     Indication: DIABETIC NEUROPATHY
     Route: 048
  34. NOVOLOG 70/30 [Concomitant]
     Indication: DIABETES MELLITUS
     Route: 058
  35. FUROSEMIDE. [Concomitant]
     Active Substance: FUROSEMIDE
     Indication: FLUID RETENTION
     Dosage: 20.0MG AS REQUIRED
     Route: 048
  36. HYDROXYZINE [Concomitant]
     Active Substance: HYDROXYZINE\HYDROXYZINE HYDROCHLORIDE
     Indication: DERMATITIS ALLERGIC
     Dosage: PRN
  37. INSULIN [Concomitant]
     Active Substance: INSULIN NOS
     Dosage: 70/30, 45 UNITS DAILY
     Route: 058
     Dates: start: 2006, end: 2013
  38. LEVEMIR [Concomitant]
     Active Substance: INSULIN DETEMIR
     Indication: DIABETES MELLITUS
     Dosage: 30 MG, TWO TIMES PER DAY, AM AND PM
     Route: 058
  39. INSULIN ASPART [Concomitant]
     Active Substance: INSULIN ASPART
     Dosage: 100 UNIT/ML, 2-10 UNITS, TIMES A DAY BEFORE MEALS
  40. INSULIN ASPART PROTAMINE INSULIN [Concomitant]
     Dosage: 40-45 UNITS, TWO TIMES A DAY
  41. ASPIRIN. [Concomitant]
     Active Substance: ASPIRIN
     Indication: ANTICOAGULANT THERAPY
     Route: 048
     Dates: start: 2006
  42. HYDROXYZINE [Concomitant]
     Active Substance: HYDROXYZINE\HYDROXYZINE HYDROCHLORIDE
     Indication: DERMATITIS ALLERGIC
     Dosage: 1 DF 3 TIMES A DAY AS NEEDED
     Route: 048
  43. INSULIN [Concomitant]
     Active Substance: INSULIN NOS
     Dosage: 70/30, 40 UNITS AT NIGHT
     Route: 058
     Dates: start: 2006, end: 2013
  44. GABAPENTIN. [Concomitant]
     Active Substance: GABAPENTIN
     Indication: LIMB DISCOMFORT
     Route: 048
     Dates: start: 201302
  45. CRESTOR [Suspect]
     Active Substance: ROSUVASTATIN CALCIUM
     Indication: BLOOD CHOLESTEROL INCREASED
     Route: 048
     Dates: start: 20120309, end: 20130513
  46. CRESTOR [Suspect]
     Active Substance: ROSUVASTATIN CALCIUM
     Indication: HYPERLIPIDAEMIA
     Route: 048
     Dates: start: 20120309, end: 20130513
  47. LYRICA [Concomitant]
     Active Substance: PREGABALIN
     Indication: DIABETIC NEUROPATHY
     Route: 048
  48. ASPIRIN. [Concomitant]
     Active Substance: ASPIRIN
     Indication: DIABETES MELLITUS
     Route: 048
     Dates: start: 2006
  49. NOVOLOG 70/30 [Concomitant]
     Indication: DIABETES MELLITUS
     Route: 058
  50. FUROSEMIDE. [Concomitant]
     Active Substance: FUROSEMIDE
     Indication: OEDEMA
     Dosage: 20.0MG AS REQUIRED
     Route: 048
  51. VITAMIN E [Concomitant]
     Active Substance: .ALPHA.-TOCOPHEROL
     Dosage: 2000 UNITS, TWO TIMES A DAY
     Route: 048
  52. COENZYME Q10 [Concomitant]
     Active Substance: UBIDECARENONE
     Route: 048

REACTIONS (26)
  - Gait disturbance [Unknown]
  - Adverse drug reaction [Unknown]
  - Pain [Unknown]
  - Weight increased [Unknown]
  - Asthenia [Recovering/Resolving]
  - Mobility decreased [Not Recovered/Not Resolved]
  - Visual impairment [Unknown]
  - Rhabdomyolysis [Recovered/Resolved]
  - Hepatic enzyme increased [Recovering/Resolving]
  - Adverse event [Unknown]
  - Diabetic neuropathy [Unknown]
  - Condition aggravated [Recovering/Resolving]
  - Dysstasia [Unknown]
  - Hepatic failure [Recovering/Resolving]
  - Activities of daily living impaired [Recovering/Resolving]
  - Urinary tract infection [Unknown]
  - Drug intolerance [Unknown]
  - Muscular weakness [Recovering/Resolving]
  - Urticaria [Unknown]
  - Influenza like illness [Recovering/Resolving]
  - Hypoacusis [Unknown]
  - Body height decreased [Unknown]
  - Renal failure [Unknown]
  - Migraine [Recovered/Resolved]
  - Anaemia [Unknown]
  - Pain in extremity [Unknown]

NARRATIVE: CASE EVENT DATE: 2013
